FAERS Safety Report 8401259-6 (Version None)
Quarter: 2012Q2

REPORT INFORMATION
  Report Type: 
  Country: None (occurrence: None)
  Receive Date: 20120525
  Receipt Date: 20110809
  Transmission Date: 20120825
  Serious: Yes (Death, Hospitalization)
  Sender: FDA-Public Use
  Company Number: US-2011-10298

PATIENT
  Age: 3 Year
  Sex: Male

DRUGS (15)
  1. BACTRIM BALSAMICO (GUAIFENESIN, SULFAMETHOXAZOLE, TRIMETHOPRIM) [Concomitant]
  2. THIOTEPA [Concomitant]
  3. MICAFUNGIN (MICAFUNGIN) [Concomitant]
  4. BUSULFEX [Suspect]
     Dosage: 15 MG MILLIGRAM(S), QID, INTRAVENOUS
     Route: 042
     Dates: start: 20110112, end: 20110115
  5. NEXIUM [Concomitant]
  6. VANCOMYCIN [Concomitant]
  7. TAZOCILLINE (PIPERACILLIN SODIUM, TAZOBACTAM SODIUM) [Concomitant]
  8. AMIKIN [Concomitant]
  9. LASILIX (FUROSEMIDE SODIUM) [Concomitant]
  10. POLARAMINE [Concomitant]
  11. TIENAM (IMIPENEM AND CILASTATIN SODIUM) [Concomitant]
  12. AMBISOME [Concomitant]
  13. ZOFRAN [Concomitant]
  14. TIORFAN (ACETORPHAN) [Concomitant]
  15. ACETAMINOPHEN [Concomitant]

REACTIONS (21)
  - DIARRHOEA [None]
  - SKIN HYPERPIGMENTATION [None]
  - ALANINE AMINOTRANSFERASE INCREASED [None]
  - GAMMA-GLUTAMYLTRANSFERASE INCREASED [None]
  - COAGULATION FACTOR V LEVEL DECREASED [None]
  - ASCITES [None]
  - VOMITING [None]
  - HYPERTHERMIA [None]
  - CARDIAC ARREST [None]
  - APLASIA [None]
  - ASPARTATE AMINOTRANSFERASE INCREASED [None]
  - CHOLESTASIS [None]
  - PROTHROMBIN LEVEL DECREASED [None]
  - ABDOMINAL PAIN [None]
  - MUCOSAL INFLAMMATION [None]
  - PULMONARY ALVEOLAR HAEMORRHAGE [None]
  - SPLENOMEGALY [None]
  - HYPERTENSION [None]
  - CELL DEATH [None]
  - SKIN TOXICITY [None]
  - VENOOCCLUSIVE DISEASE [None]
